FAERS Safety Report 5419604-2 (Version None)
Quarter: 2007Q3

REPORT INFORMATION
  Report Type: 
  Country: None (occurrence: None)
  Receive Date: 20070816
  Receipt Date: 20070816
  Transmission Date: 20080115
  Serious: No
  Sender: FDA-Public Use
  Company Number: None

PATIENT
  Sex: Female
  Weight: 101.1521 kg

DRUGS (8)
  1. LEVOTHYROXINE 0.150 MG MYLAN [Suspect]
     Indication: HYPOTHYROIDISM
     Dosage: 0.150 MG DAILY PO
     Route: 048
     Dates: start: 20070424, end: 20070723
  2. METFORMIN HCL [Concomitant]
  3. LIPITOR [Concomitant]
  4. ASPIRIN [Concomitant]
  5. ENALAPRIL MALEATE AND HYDROCHLOROTHIAZIDE [Concomitant]
  6. NAPROXEN [Concomitant]
  7. CALCIUM + VITAMIN D [Concomitant]
  8. CYMBALTA [Concomitant]

REACTIONS (5)
  - BASEDOW'S DISEASE [None]
  - BLOOD THYROID STIMULATING HORMONE INCREASED [None]
  - FATIGUE [None]
  - THERAPEUTIC RESPONSE UNEXPECTED [None]
  - WEIGHT DECREASED [None]
